FAERS Safety Report 5041740-3 (Version None)
Quarter: 2006Q2

REPORT INFORMATION
  Report Type: 
  Country: None (occurrence: None)
  Receive Date: 20060630
  Receipt Date: 20060621
  Transmission Date: 20061013
  Serious: Yes (Hospitalization, Other)
  Sender: FDA-Public Use
  Company Number: 2006012180

PATIENT
  Age: 60 Year
  Sex: Female

DRUGS (15)
  1. CELEBREX [Suspect]
     Indication: ILL-DEFINED DISORDER
     Dates: start: 19990101
  2. BEXTRA [Suspect]
     Indication: ILL-DEFINED DISORDER
     Dates: start: 19990101
  3. RYTHMOL [Concomitant]
  4. XANAX [Concomitant]
  5. LOVASTATIN [Concomitant]
  6. LOPRESSOR [Concomitant]
  7. ASPIRIN [Concomitant]
  8. PLAVIX [Concomitant]
  9. SINGULAIR ^DIECKMANN^ (MONTELUKAST SODIUM) [Concomitant]
  10. LISINOPRIL [Concomitant]
  11. ASTELIN [Concomitant]
  12. FLOVENT [Concomitant]
  13. SYNTHROID [Concomitant]
  14. PROTONIX [Concomitant]
  15. PAXIL [Concomitant]

REACTIONS (18)
  - ADHESIOLYSIS [None]
  - ANAEMIA [None]
  - ANGINA UNSTABLE [None]
  - ARTERIOSCLEROSIS CORONARY ARTERY [None]
  - ATRIAL FIBRILLATION [None]
  - CARDIAC DISORDER [None]
  - CORONARY ARTERY STENOSIS [None]
  - DIZZINESS [None]
  - GASTRIC BYPASS [None]
  - HERNIA REPAIR [None]
  - INJURY [None]
  - MYOCARDIAL INFARCTION [None]
  - MYOCARDIAL ISCHAEMIA [None]
  - NAUSEA [None]
  - PNEUMONIA [None]
  - RENAL FAILURE ACUTE [None]
  - SEPSIS [None]
  - SYNCOPE [None]
